FAERS Safety Report 25012607 (Version 1)
Quarter: 2025Q1

REPORT INFORMATION
  Report Type: Spontaneous
  Country: CA (occurrence: CA)
  Receive Date: 20250226
  Receipt Date: 20250226
  Transmission Date: 20250409
  Serious: Yes (Other)
  Sender: SAMSUNG BIOEPIS
  Company Number: CA-SAMSUNG BIOEPIS-SB-2025-06434

PATIENT
  Age: 61 Year
  Sex: Female
  Weight: 68 kg

DRUGS (1)
  1. HADLIMA [Suspect]
     Active Substance: ADALIMUMAB-BWWD
     Indication: Rheumatoid arthritis
     Route: 058

REACTIONS (8)
  - C-reactive protein abnormal [Unknown]
  - Decreased appetite [Unknown]
  - Dry mouth [Unknown]
  - Fatigue [Unknown]
  - Headache [Unknown]
  - Hot flush [Unknown]
  - Hyperhidrosis [Unknown]
  - Red blood cell sedimentation rate abnormal [Unknown]
